FAERS Safety Report 5039083-7 (Version None)
Quarter: 2006Q2

REPORT INFORMATION
  Report Type: 
  Country: None (occurrence: None)
  Receive Date: 20060629
  Receipt Date: 20060529
  Transmission Date: 20061013
  Serious: Yes (Hospitalization)
  Sender: FDA-Public Use
  Company Number: DEWYE659629MAY06

PATIENT
  Sex: Male

DRUGS (3)
  1. ENBREL [Suspect]
     Indication: ANKYLOSING SPONDYLITIS
     Route: 058
  2. ACCUZIDE [Concomitant]
     Indication: HYPERTENSION
     Route: 048
  3. MST [Concomitant]
     Indication: PAIN
     Route: 048

REACTIONS (2)
  - HEPATITIS [None]
  - HEPATITIS ACUTE [None]
